FAERS Safety Report 10727475 (Version 1)
Quarter: 2015Q1

REPORT INFORMATION
  Report Type: Spontaneous
  Country: NO (occurrence: NO)
  Receive Date: 20150121
  Receipt Date: 20150121
  Transmission Date: 20150721
  Serious: Yes (Hospitalization)
  Sender: FDA-Public Use
  Company Number: PHHY2015NO003773

PATIENT
  Age: 42 Year
  Sex: Male

DRUGS (5)
  1. ENBREL [Suspect]
     Active Substance: ETANERCEPT
     Indication: ANKYLOSING SPONDYLITIS
     Route: 058
     Dates: start: 20070918, end: 20120927
  2. OXIS TURBOHALER [Concomitant]
     Indication: PRODUCT USED FOR UNKNOWN INDICATION
     Dosage: 1 DF, BID
     Route: 065
     Dates: start: 20081124
  3. NASONEX [Concomitant]
     Active Substance: MOMETASONE FUROATE
     Indication: PRODUCT USED FOR UNKNOWN INDICATION
     Dosage: 50 UG, QD
     Route: 065
     Dates: start: 20080317
  4. MAREVAN [Concomitant]
     Active Substance: WARFARIN SODIUM
     Indication: DEEP VEIN THROMBOSIS
     Dosage: ACCORDING TO SCHEDULE/INR VALUES
     Route: 048
     Dates: start: 2007
  5. DIOVAN COMP [Suspect]
     Active Substance: HYDROCHLOROTHIAZIDE\VALSARTAN
     Indication: PRODUCT USED FOR UNKNOWN INDICATION
     Dosage: 1 DF, UNK
     Route: 065
     Dates: start: 20090204

REACTIONS (22)
  - Demyelination [Not Recovered/Not Resolved]
  - Myelomalacia [None]
  - Pain [None]
  - Pyrexia [None]
  - Emotional disorder [None]
  - Peripheral sensory neuropathy [None]
  - Mobility decreased [None]
  - Hyporeflexia [None]
  - Hearing impaired [None]
  - Libido decreased [None]
  - Tremor [None]
  - Hypersensitivity [None]
  - Gastrointestinal disorder [None]
  - Dysuria [None]
  - Visual acuity reduced [None]
  - Balance disorder [None]
  - Sleep disorder [None]
  - Night sweats [None]
  - Hypertension [None]
  - Memory impairment [None]
  - Dyspnoea [None]
  - Paraesthesia [None]

NARRATIVE: CASE EVENT DATE: 201102
